FAERS Safety Report 10563894 (Version 1)
Quarter: 2014Q4

REPORT INFORMATION
  Report Type: Spontaneous
  Country: FR (occurrence: FR)
  Receive Date: 20141104
  Receipt Date: 20141104
  Transmission Date: 20150529
  Serious: Yes (Death, Life-Threatening)
  Sender: FDA-Public Use
  Company Number: FR-ASPEN PHARMA TRADING LIMITED US-AG-2014-006904

PATIENT
  Age: 40 Year
  Sex: Male
  Weight: 70 kg

DRUGS (2)
  1. ALTEIS [Concomitant]
     Active Substance: OLMESARTAN MEDOXOMIL
     Indication: PRODUCT USED FOR UNKNOWN INDICATION
     Route: 048
  2. ARIXTRA [Suspect]
     Active Substance: FONDAPARINUX SODIUM
     Indication: DEEP VEIN THROMBOSIS
     Route: 058
     Dates: start: 20140801, end: 20140822

REACTIONS (10)
  - Seizure [None]
  - Subarachnoid haemorrhage [Fatal]
  - Fall [None]
  - Brain death [None]
  - Agitation [None]
  - Brain midline shift [None]
  - Aneurysm ruptured [None]
  - Coma [None]
  - Head injury [None]
  - Intracranial pressure increased [None]

NARRATIVE: CASE EVENT DATE: 20140823
